FAERS Safety Report 10784675 (Version 1)
Quarter: 2015Q1

REPORT INFORMATION
  Report Type: Spontaneous
  Country: US (occurrence: None)
  Receive Date: 20150209
  Receipt Date: 20150209
  Transmission Date: 20150721
  Serious: No
  Sender: FDA-Public Use
  Company Number: None

PATIENT
  Age: 70 Year
  Sex: Male
  Weight: 95.26 kg

DRUGS (2)
  1. VANCOMYCIN 1.4G HOSPIRA [Suspect]
     Active Substance: VANCOMYCIN
     Indication: JOINT ARTHROPLASTY
     Route: 042
     Dates: start: 20150107
  2. VANCOMYCIN 1.4G HOSPIRA [Suspect]
     Active Substance: VANCOMYCIN
     Indication: INFECTION
     Route: 042
     Dates: start: 20150107

REACTIONS (5)
  - Rash [None]
  - Pyrexia [None]
  - Nausea [None]
  - Vomiting [None]
  - Infusion related reaction [None]

NARRATIVE: CASE EVENT DATE: 20150109
